FAERS Safety Report 5206464-8 (Version None)
Quarter: 2007Q1

REPORT INFORMATION
  Report Type: 
  Country: None (occurrence: None)
  Receive Date: 20070111
  Receipt Date: 20070102
  Transmission Date: 20070707
  Serious: Yes (Death, Other)
  Sender: FDA-Public Use
  Company Number: US-PFIZER INC-2007001971

PATIENT
  Sex: Female
  Weight: 54.4 kg

DRUGS (1)
  1. BEXTRA [Suspect]
     Indication: ARTHRITIS
     Dosage: DAILY DOSE:20MG
     Dates: start: 20020601, end: 20040216

REACTIONS (2)
  - DEATH [None]
  - MYOCARDIAL INFARCTION [None]
